FAERS Safety Report 20695787 (Version 4)
Quarter: 2022Q4

REPORT INFORMATION
  Report Type: Report from Study
  Country: NL (occurrence: NL)
  Receive Date: 20220411
  Receipt Date: 20221201
  Transmission Date: 20230112
  Serious: Yes (Other)
  Sender: FDA-Public Use
  Company Number: NL-ABBVIE-21K-114-4070114-00

PATIENT
  Sex: Male

DRUGS (15)
  1. PRAMIPEXOLE [Suspect]
     Active Substance: PRAMIPEXOLE
     Indication: Parkinson^s disease
     Dosage: 3 DOSAGE FORM, QD
     Route: 048
     Dates: start: 20210201
  2. PRAMIPEXOLE [Suspect]
     Active Substance: PRAMIPEXOLE
     Dosage: 0.26 MILLIGRAM, QD
     Route: 048
  3. PRAMIPEXOLE [Suspect]
     Active Substance: PRAMIPEXOLE
     Dosage: 0.26 MILLIGRAM, 0.333 DAY
     Route: 048
     Dates: start: 20210201
  4. CARBIDOPA\LEVODOPA [Suspect]
     Active Substance: CARBIDOPA\LEVODOPA
     Indication: Parkinson^s disease
     Dosage: MD 0.0 ML; CD 4.1 ML/H; ED 1.5 ML; ND 7.0 ML
     Route: 065
  5. CARBIDOPA\LEVODOPA [Suspect]
     Active Substance: CARBIDOPA\LEVODOPA
     Dosage: UNK (MD: 0.0 ML, CD: 4.1 ML/H,ED: 2.0 ML, ND: 7.0 ML
     Route: 065
  6. CARBIDOPA\LEVODOPA [Suspect]
     Active Substance: CARBIDOPA\LEVODOPA
     Dosage: MD: 8.5 ML, CD: 4.0 ML/H, ED: 1.5 ML
     Route: 065
  7. CARBIDOPA\LEVODOPA [Suspect]
     Active Substance: CARBIDOPA\LEVODOPA
     Dosage: MD: 7.0 ML, CD: 4.0 ML/H, ED: 1.5 ML
     Route: 065
  8. CARBIDOPA\LEVODOPA [Suspect]
     Active Substance: CARBIDOPA\LEVODOPA
     Dosage: UNK
     Route: 065
     Dates: start: 20170214
  9. CARBIDOPA\LEVODOPA [Suspect]
     Active Substance: CARBIDOPA\LEVODOPA
     Dosage: MD: 0.0 ML, CD: 4.3 ML/H, ED: 2.0 ML, ND: 0.0 ML,
     Route: 065
  10. CARBIDOPA\LEVODOPA [Suspect]
     Active Substance: CARBIDOPA\LEVODOPA
     Dosage: MD: 0.0 ML, CD: 4.5 ML/H, ED: 2.0 ML, ND: 7.0 ML
     Route: 065
  11. CARBIDOPA\LEVODOPA [Suspect]
     Active Substance: CARBIDOPA\LEVODOPA
     Dosage: MD: 0.0 ML,CD: 4.7 ML/H,ED: 2.0 ML, ND: 7.0 ML,CND 4.5 ML/H; CDD 2.0 ML/H; END: 1.5 ML)
     Route: 065
  12. MOVICOLON [Concomitant]
     Active Substance: POLYETHYLENE GLYCOL 3350\POTASSIUM CHLORIDE\SODIUM BICARBONATE\SODIUM CHLORIDE
     Indication: Bowel movement irregularity
     Dosage: UNK, PRN
     Route: 065
  13. BENSERAZIDE HYDROCHLORIDE\LEVODOPA [Concomitant]
     Active Substance: BENSERAZIDE HYDROCHLORIDE\LEVODOPA
     Indication: Parkinson^s disease
     Dosage: 2 DOSAGE FORM, QD
     Route: 065
  14. BENSERAZIDE HYDROCHLORIDE\LEVODOPA [Concomitant]
     Active Substance: BENSERAZIDE HYDROCHLORIDE\LEVODOPA
     Indication: Product used for unknown indication
     Dosage: 1 DOSAGE FORM, 0.5 DAY (BID)
     Route: 065
  15. AMITRIPTYLINE [Concomitant]
     Active Substance: AMITRIPTYLINE
     Indication: Neuropathy peripheral
     Dosage: UNK
     Route: 065
     Dates: end: 20200916

REACTIONS (28)
  - Polyneuropathy [Not Recovered/Not Resolved]
  - Deafness [Not Recovered/Not Resolved]
  - Dystonia [Not Recovered/Not Resolved]
  - Hallucination [Recovered/Resolved]
  - Tension [Not Recovered/Not Resolved]
  - Emotional disorder [Not Recovered/Not Resolved]
  - Gait disturbance [Recovered/Resolved]
  - On and off phenomenon [Unknown]
  - Muscle spasms [Not Recovered/Not Resolved]
  - Memory impairment [Not Recovered/Not Resolved]
  - Muscle rigidity [Not Recovered/Not Resolved]
  - Gait disturbance [Recovered/Resolved]
  - Stress [Unknown]
  - COVID-19 [Recovered/Resolved with Sequelae]
  - Unevaluable event [Not Recovered/Not Resolved]
  - Nocturia [Not Recovered/Not Resolved]
  - Medical device site dryness [Unknown]
  - Stoma site erythema [Unknown]
  - Freezing phenomenon [Recovering/Resolving]
  - Incorrect dose administered [Not Recovered/Not Resolved]
  - Pain in extremity [Not Recovered/Not Resolved]
  - General physical health deterioration [Not Recovered/Not Resolved]
  - Mobility decreased [Recovered/Resolved]
  - Weight increased [Recovered/Resolved]
  - Dyskinesia [Unknown]
  - Confusional state [Not Recovered/Not Resolved]
  - Extra dose administered [Not Recovered/Not Resolved]
  - Therapeutic product effect decreased [Not Recovered/Not Resolved]

NARRATIVE: CASE EVENT DATE: 20210101
